FAERS Safety Report 6902905-6 (Version None)
Quarter: 2010Q3

REPORT INFORMATION
  Report Type: 
  Country: None (occurrence: None)
  Receive Date: 20100803
  Receipt Date: 20080630
  Transmission Date: 20110219
  Serious: Yes (Other)
  Sender: FDA-Public Use
  Company Number: US-PFIZER INC-2008055897

PATIENT
  Sex: Female
  Weight: 52.2 kg

DRUGS (8)
  1. LYRICA [Suspect]
     Indication: NEURALGIA
     Dates: start: 20080624, end: 20080626
  2. PROZAC [Concomitant]
  3. MULTI-VITAMINS [Concomitant]
  4. IRON [Concomitant]
  5. CALCIUM [Concomitant]
  6. MAGNESIUM [Concomitant]
  7. LOVAZA [Concomitant]
  8. BORAGE OIL [Concomitant]

REACTIONS (1)
  - DERMATITIS BULLOUS [None]
